FAERS Safety Report 8735871 (Version 2)
Quarter: 2012Q4

REPORT INFORMATION
  Report Type: Spontaneous
  Country: JO (occurrence: None)
  Receive Date: 20120802
  Receipt Date: 20121102
  Transmission Date: 20130627
  Serious: Yes (Death, Hospitalization)
  Sender: FDA-Public Use
  Company Number: NSR_00594_2012

PATIENT
  Age: 40 Year
  Sex: Female

DRUGS (6)
  1. LAMOTRIGINE [Suspect]
     Indication: PSYCHOTIC DISORDER
     Dosage: (100 MG QD)
  2. VENLAFAXINE HYDROCHLORIDE [Suspect]
     Indication: PSYCHOTIC DISORDER
     Dosage: (75 MG QD)
  3. MIRTAZAPINE [Suspect]
     Indication: PSYCHOTIC DISORDER
     Dosage: (15 MG QD)
  4. QUETIAPINE FUMARATE [Suspect]
     Indication: PSYCHOTIC DISORDER
     Dosage: (300 MG QD)
  5. FERROUS SULFATE [Concomitant]
  6. ALPRAZOLAM (UNKNOWN UNTIL NOT CONTINUING) [Concomitant]

REACTIONS (28)
  - ORAL CANDIDIASIS [None]
  - FEBRILE NEUTROPENIA [None]
  - CONVULSION [None]
  - CARDIAC ARREST [None]
  - UNRESPONSIVE TO STIMULI [None]
  - BLOOD POTASSIUM DECREASED [None]
  - BLOOD LACTIC ACID DECREASED [None]
  - LUNG CONSOLIDATION [None]
  - LUNG NEOPLASM [None]
  - LUNG INFECTION [None]
  - ENTEROCOCCUS TEST POSITIVE [None]
  - ASPERGILLUS TEST POSITIVE [None]
  - CANDIDA TEST POSITIVE [None]
  - GENERAL PHYSICAL HEALTH DETERIORATION [None]
  - RENAL FAILURE ACUTE [None]
  - SEPTIC SHOCK [None]
  - CELLULITIS ORBITAL [None]
  - PHARYNGITIS [None]
  - HAEMODIALYSIS [None]
  - ALANINE AMINOTRANSFERASE INCREASED [None]
  - ASPARTATE AMINOTRANSFERASE INCREASED [None]
  - BLOOD BILIRUBIN INCREASED [None]
  - BILIRUBIN CONJUGATED INCREASED [None]
  - PLATELET COUNT DECREASED [None]
  - AGRANULOCYTOSIS [None]
  - BLOOD PH DECREASED [None]
  - BLOOD BICARBONATE DECREASED [None]
  - BONE MARROW FAILURE [None]
